FAERS Safety Report 10202971 (Version 2)
Quarter: 2015Q1

REPORT INFORMATION
  Report Type: Spontaneous
  Country: GB (occurrence: GB)
  Receive Date: 20140528
  Receipt Date: 20150226
  Transmission Date: 20150720
  Serious: Yes (Other)
  Sender: FDA-Public Use
  Company Number: PHHY2014GB064522

PATIENT

DRUGS (1)
  1. PHENOXYMETHYLPENICILLIN [Suspect]
     Active Substance: PENICILLIN V
     Dosage: (MATERNAL DOSE: 2DF QID)
     Route: 064

REACTIONS (2)
  - Foetal growth restriction [Not Recovered/Not Resolved]
  - Foetal exposure during pregnancy [Unknown]
